FAERS Safety Report 25739839 (Version 1)
Quarter: 2025Q3

REPORT INFORMATION
  Report Type: Report from Study
  Country: US (occurrence: US)
  Receive Date: 20250829
  Receipt Date: 20250829
  Transmission Date: 20251021
  Serious: Yes (Other)
  Sender: BLUEBIRD BIO
  Company Number: US-BLUEBIRD BIO-US-BBB-25-00059

PATIENT

DRUGS (1)
  1. ZYNTEGLO [Suspect]
     Active Substance: BETIBEGLOGENE AUTOTEMCEL
     Indication: Thalassaemia beta
     Route: 042
     Dates: start: 20250409, end: 20250409

REACTIONS (2)
  - Haemoglobin decreased [Unknown]
  - White blood cell count decreased [Unknown]
